FAERS Safety Report 9975484 (Version 1)
Quarter: 2014Q1

REPORT INFORMATION
  Report Type: Report from Study
  Country: US (occurrence: US)
  Receive Date: 20140306
  Receipt Date: 20140306
  Transmission Date: 20141002
  Serious: No
  Sender: FDA-Public Use
  Company Number: US-ABBVIE-13P-163-1155760-00

PATIENT
  Age: 41 Year
  Sex: Female

DRUGS (2)
  1. HUMIRA [Suspect]
     Indication: CROHN^S DISEASE
     Dosage: LOADING DOSE
     Dates: start: 20130926
  2. DOXEPIN [Concomitant]
     Indication: ANXIETY
     Dosage: 75 MG TABLETS 1 TABLETS IN AM AND 2 TABLETS AT BEDTIME

REACTIONS (1)
  - Fatigue [Not Recovered/Not Resolved]
